FAERS Safety Report 18547764 (Version 2)
Quarter: 2020Q4

REPORT INFORMATION
  Report Type: Report from Study
  Country: US (occurrence: US)
  Receive Date: 20201125
  Receipt Date: 20201215
  Transmission Date: 20210114
  Serious: Yes (Hospitalization)
  Sender: FDA-Public Use
  Company Number: US-BRISTOL-MYERS SQUIBB COMPANY-BMS-2020-099675

PATIENT
  Age: 57 Year
  Sex: Male
  Weight: 90.7 kg

DRUGS (4)
  1. NIVOLUMAB [Suspect]
     Active Substance: NIVOLUMAB
     Indication: METASTATIC OCULAR MELANOMA
     Dosage: 240 MILLIGRAM, Q2WK
     Route: 042
     Dates: start: 20200715, end: 20201130
  2. LEVOTHYROXINE. [Concomitant]
     Active Substance: LEVOTHYROXINE
     Indication: HYPOTHYROIDISM
     Dosage: 50 MICROGRAM DAILY
     Route: 065
     Dates: start: 20201110
  3. IPILIMUMAB [Suspect]
     Active Substance: IPILIMUMAB
     Indication: METASTATIC OCULAR MELANOMA
     Dosage: 100 MILLIGRAM, Q6WK
     Route: 042
     Dates: start: 20200715, end: 20201130
  4. HYDROCORTISONE. [Concomitant]
     Active Substance: HYDROCORTISONE
     Indication: ADRENAL INSUFFICIENCY
     Dosage: 20 MILLIGRAM DAILY
     Route: 065
     Dates: start: 20201109

REACTIONS (1)
  - Pneumonitis [Recovered/Resolved]

NARRATIVE: CASE EVENT DATE: 20201119
